FAERS Safety Report 13125302 (Version 1)
Quarter: 2017Q1

REPORT INFORMATION
  Report Type: Spontaneous
  Country: FR (occurrence: FR)
  Receive Date: 20170118
  Receipt Date: 20170118
  Transmission Date: 20170428
  Serious: Yes (Death)
  Sender: FDA-Public Use
  Company Number: FR-PFIZER INC-2017019615

PATIENT
  Age: 78 Year
  Sex: Male

DRUGS (1)
  1. CRIZOTINIB [Suspect]
     Active Substance: CRIZOTINIB
     Indication: LUNG NEOPLASM MALIGNANT
     Dosage: UNK
     Dates: start: 201506

REACTIONS (5)
  - Oedema [Unknown]
  - Muscle spasms [Unknown]
  - Infection [Unknown]
  - Death [Fatal]
  - Blood testosterone decreased [Unknown]

NARRATIVE: CASE EVENT DATE: 201701
